FAERS Safety Report 4966434-1 (Version None)
Quarter: 2006Q2

REPORT INFORMATION
  Report Type: 
  Country: None (occurrence: None)
  Receive Date: 20060407
  Receipt Date: 20060307
  Transmission Date: 20061013
  Serious: Yes (Other)
  Sender: FDA-Public Use
  Company Number: US-ROCHE-439598

PATIENT
  Age: 55 Year
  Sex: Male
  Weight: 71.7 kg

DRUGS (1)
  1. PEGASYS [Suspect]
     Route: 058

REACTIONS (2)
  - HIP ARTHROPLASTY [None]
  - ILL-DEFINED DISORDER [None]
